FAERS Safety Report 15387381 (Version 2)
Quarter: 2018Q3

REPORT INFORMATION
  Report Type: Spontaneous
  Country: IT (occurrence: IT)
  Receive Date: 20180914
  Receipt Date: 20180921
  Transmission Date: 20181010
  Serious: Yes (Hospitalization, Other)
  Sender: FDA-Public Use
  Company Number: IT-SA-2018SA167819

PATIENT
  Age: 39 Year
  Sex: Female

DRUGS (1)
  1. TERIFLUNOMIDE [Suspect]
     Active Substance: TERIFLUNOMIDE
     Indication: MULTIPLE SCLEROSIS
     Dosage: 1 DF, QD
     Route: 048
     Dates: start: 201711

REACTIONS (8)
  - Empyema drainage [Unknown]
  - Cholelithiasis [Unknown]
  - Total bile acids increased [Recovered/Resolved]
  - Hepatic enzyme increased [Recovered/Resolved]
  - Cholecystitis infective [Unknown]
  - Abdominal pain [Recovered/Resolved]
  - Cholecystitis [Recovered/Resolved]
  - Hepatomegaly [Recovered/Resolved]
